FAERS Safety Report 6812001-4 (Version None)
Quarter: 2010Q3

REPORT INFORMATION
  Report Type: 
  Country: None (occurrence: None)
  Receive Date: 20100701
  Receipt Date: 20100618
  Transmission Date: 20110219
  Serious: Yes (Other)
  Sender: FDA-Public Use
  Company Number: PHHY2010BR40168

PATIENT
  Sex: Female

DRUGS (8)
  1. DIOVAN HCT [Suspect]
     Indication: HYPERTENSION
     Dosage: 160/25 MG
  2. DIOVAN HCT [Suspect]
     Dosage: 160/12.5 MG
  3. PURAN T4 [Concomitant]
     Indication: THYROID DISORDER
     Dosage: 100 MG
  4. FENOFIBRATE [Concomitant]
     Indication: BLOOD CHOLESTEROL
     Dosage: 150 MG
  5. JANUVIA [Concomitant]
     Indication: GLUCOSE TOLERANCE IMPAIRED
     Dosage: 50 MG
  6. CILOSTAZOL [Concomitant]
  7. ASPIRIN [Concomitant]
     Indication: ANTICOAGULANT THERAPY
     Dosage: 100 MG
  8. OMEPRAZOLE [Concomitant]
     Indication: GASTRIC DISORDER

REACTIONS (4)
  - FATIGUE [None]
  - HYPOTENSION [None]
  - ORTHOPEDIC PROCEDURE [None]
  - POLLAKIURIA [None]
